FAERS Safety Report 7127822-0 (Version None)
Quarter: 2010Q4

REPORT INFORMATION
  Report Type: 
  Country: None (occurrence: None)
  Receive Date: 20101029
  Receipt Date: 20100222
  Transmission Date: 20110411
  Serious: Yes (Other)
  Sender: FDA-Public Use
  Company Number: 298495

PATIENT

DRUGS (1)
  1. CATHFLO ACTIVASE [Suspect]
     Indication: DEVICE OCCLUSION

REACTIONS (1)
  - DRUG INEFFECTIVE [None]
